FAERS Safety Report 15586794 (Version 1)
Quarter: 2018Q4

REPORT INFORMATION
  Report Type: Spontaneous
  Country: US (occurrence: US)
  Receive Date: 20181105
  Receipt Date: 20181105
  Transmission Date: 20190205
  Serious: Yes (Life-Threatening, Disabling)
  Sender: FDA-Public Use
  Company Number: None

PATIENT
  Age: 66 Year
  Sex: Female
  Weight: 46.8 kg

DRUGS (3)
  1. LYRICA [Suspect]
     Active Substance: PREGABALIN
     Indication: MUSCULOSKELETAL PAIN
     Dosage: ?          QUANTITY:2 CAPSULE(S);?STRENGTH INCRD TO 75 TID (25 + 50 CAPSULES) MG MILLIGRAM(S) ?
     Route: 048
     Dates: end: 20181027
  2. LYRICA [Suspect]
     Active Substance: PREGABALIN
     Indication: NEURALGIA
     Dosage: ?          QUANTITY:2 CAPSULE(S);?STRENGTH INCRD TO 75 TID (25 + 50 CAPSULES) MG MILLIGRAM(S) ?
     Route: 048
     Dates: end: 20181027
  3. LYRICA [Suspect]
     Active Substance: PREGABALIN
     Indication: EHLERS-DANLOS SYNDROME
     Dosage: ?          QUANTITY:2 CAPSULE(S);?STRENGTH INCRD TO 75 TID (25 + 50 CAPSULES) MG MILLIGRAM(S) ?
     Route: 048
     Dates: end: 20181027

REACTIONS (13)
  - Muscle spasticity [None]
  - Hypertension [None]
  - Product substitution issue [None]
  - Hypotension [None]
  - White blood cells urine [None]
  - Nystagmus [None]
  - Cardiac dysfunction [None]
  - Dyspnoea [None]
  - Renal injury [None]
  - Tachycardia [None]
  - Muscle spasms [None]
  - Chorea [None]
  - Therapy cessation [None]

NARRATIVE: CASE EVENT DATE: 20181025
